FAERS Safety Report 10330451 (Version 2)
Quarter: 2014Q3

REPORT INFORMATION
  Report Type: Spontaneous
  Country: US (occurrence: US)
  Receive Date: 20140722
  Receipt Date: 20140722
  Transmission Date: 20150326
  Serious: Yes (Disabling, Other)
  Sender: FDA-Public Use
  Company Number: US-009507513-1407USA007086

PATIENT
  Age: 56 Year
  Sex: Male
  Weight: 86.62 kg

DRUGS (4)
  1. CRESTOR [Concomitant]
     Active Substance: ROSUVASTATIN CALCIUM
  2. JANUMET [Suspect]
     Active Substance: METFORMIN HYDROCHLORIDE\SITAGLIPTIN PHOSPHATE
     Indication: TYPE 2 DIABETES MELLITUS
     Dosage: 1 TABLET, BID, ONE DOSE IN AM AND ONE DOSE IN PM
     Route: 048
     Dates: start: 20111026, end: 20130214
  3. ZETIA [Concomitant]
     Active Substance: EZETIMIBE
     Route: 048
  4. CELEBREX [Concomitant]
     Active Substance: CELECOXIB

REACTIONS (2)
  - Aggression [Unknown]
  - Verbal abuse [Unknown]
